FAERS Safety Report 9931899 (Version 2)
Quarter: 2014Q1

REPORT INFORMATION
  Report Type: Spontaneous
  Country: US (occurrence: US)
  Receive Date: 20140228
  Receipt Date: 20140317
  Transmission Date: 20141002
  Serious: Yes (Hospitalization)
  Sender: FDA-Public Use
  Company Number: US-009507513-1402USA011747

PATIENT
  Age: 88 Year
  Sex: Female

DRUGS (2)
  1. CARBIDOPA (+) LEVODOPA [Suspect]
     Dosage: DOSE UNSPECIFIED, 2 TAB IN THE MORNING, 1 TAB IN THE AFTERNOON, 1 TAB IN THE EVENING
     Route: 048
  2. APIXABAN [Concomitant]

REACTIONS (1)
  - Gastrointestinal haemorrhage [Unknown]
